FAERS Safety Report 12539518 (Version 1)
Quarter: 2016Q3

REPORT INFORMATION
  Report Type: Spontaneous
  Country: US (occurrence: US)
  Receive Date: 20160708
  Receipt Date: 20160708
  Transmission Date: 20161109
  Serious: Yes (Hospitalization, Other)
  Sender: FDA-Public Use
  Company Number: US-STRIDES ARCOLAB LIMITED-2016SP009075

PATIENT

DRUGS (1)
  1. IBUPROFEN. [Suspect]
     Active Substance: IBUPROFEN
     Indication: ARTHRITIS
     Dosage: UNK

REACTIONS (10)
  - Pneumothorax [Unknown]
  - Pleural effusion [Unknown]
  - Pain [Unknown]
  - Abdominal tenderness [Unknown]
  - Incorrect drug administration duration [Unknown]
  - Chest pain [Unknown]
  - Oesophageal rupture [Unknown]
  - Dysphagia [Unknown]
  - Oesophageal fibrosis [Unknown]
  - Pneumomediastinum [Unknown]
